FAERS Safety Report 23732446 (Version 1)
Quarter: 2024Q2

REPORT INFORMATION
  Report Type: Spontaneous
  Country: CN (occurrence: CN)
  Receive Date: 20240411
  Receipt Date: 20240411
  Transmission Date: 20240715
  Serious: Yes (Hospitalization, Other)
  Sender: FDA-Public Use
  Company Number: CN-BAYER-2024A053199

PATIENT
  Age: 66 Year
  Sex: Male
  Weight: 67 kg

DRUGS (1)
  1. KERENDIA [Suspect]
     Active Substance: FINERENONE
     Indication: Diabetic nephropathy
     Dosage: 20 ML, QD
     Route: 048
     Dates: start: 20240211, end: 20240322

REACTIONS (4)
  - Renal failure [Recovering/Resolving]
  - Glomerular filtration rate decreased [Recovering/Resolving]
  - Oliguria [Recovering/Resolving]
  - Asthenia [Recovering/Resolving]

NARRATIVE: CASE EVENT DATE: 20240322
